FAERS Safety Report 15587022 (Version 1)
Quarter: 2018Q4

REPORT INFORMATION
  Report Type: Spontaneous
  Country: GR (occurrence: GR)
  Receive Date: 20181105
  Receipt Date: 20181105
  Transmission Date: 20190205
  Serious: Yes (Hospitalization)
  Sender: FDA-Public Use
  Company Number: GR-BAYER-2018-199160

PATIENT
  Age: 62 Year
  Sex: Female

DRUGS (1)
  1. CIPROXIN 500 MG [Suspect]
     Active Substance: CIPROFLOXACIN
     Dosage: 500 MG, BID
     Route: 048
     Dates: start: 201808, end: 2018

REACTIONS (10)
  - Blood creatinine increased [None]
  - Vomiting [Recovered/Resolved]
  - Weight decreased [None]
  - Abdominal pain [Recovered/Resolved]
  - Haematocrit decreased [None]
  - Intervertebral disc disorder [None]
  - Bedridden [Recovered/Resolved]
  - Acute kidney injury [Recovered/Resolved]
  - Oliguria [Recovered/Resolved]
  - Sciatica [None]

NARRATIVE: CASE EVENT DATE: 2018
